FAERS Safety Report 9513407 (Version 1)
Quarter: 2013Q3

REPORT INFORMATION
  Report Type: Spontaneous
  Country: US (occurrence: US)
  Receive Date: 20130910
  Receipt Date: 20130910
  Transmission Date: 20140515
  Serious: No
  Sender: FDA-Public Use
  Company Number: US-TARO-2012P1053668

PATIENT
  Age: 63 Year
  Sex: Male
  Weight: 129.28 kg

DRUGS (8)
  1. WARFARIN SODIUM TABLETS USP 10MG [Suspect]
     Indication: PULMONARY EMBOLISM
     Route: 048
     Dates: start: 201201
  2. WARFARIN SODIUM TABLETS USP 10MG [Suspect]
     Indication: PULMONARY EMBOLISM
     Route: 048
     Dates: start: 20120819, end: 20120819
  3. WARFARIN SODIUM TABLETS USP 10MG [Suspect]
     Indication: PULMONARY EMBOLISM
     Route: 048
     Dates: start: 20120820
  4. JANUMET 50/100 [Concomitant]
     Dates: start: 201204
  5. CRESTOR [Concomitant]
     Dates: start: 201112
  6. CARVEDILOL [Concomitant]
     Dates: start: 2009
  7. VITAMIN D3 [Concomitant]
     Dates: start: 2010
  8. OMEGA-3 FISH OIL [Concomitant]
     Dates: end: 20120808

REACTIONS (1)
  - International normalised ratio decreased [Unknown]
